FAERS Safety Report 13758490 (Version 1)
Quarter: 2017Q3

REPORT INFORMATION
  Report Type: Spontaneous
  Country: GB (occurrence: GB)
  Receive Date: 20170717
  Receipt Date: 20170717
  Transmission Date: 20171127
  Serious: Yes (Other)
  Sender: FDA-Public Use
  Company Number: GB-SUN PHARMACEUTICAL INDUSTRIES LTD-2017RR-144798

PATIENT
  Sex: Female

DRUGS (1)
  1. SUMATRIPTAN SUN 6 MG/0.5 ML SOLUTION FOR INJECTION [Suspect]
     Active Substance: SUMATRIPTAN
     Indication: PRODUCT USED FOR UNKNOWN INDICATION
     Route: 065

REACTIONS (5)
  - Disorientation [Unknown]
  - Palpitations [Unknown]
  - Product quality issue [Unknown]
  - Aphasia [Unknown]
  - Coordination abnormal [Unknown]
